FAERS Safety Report 20349825 (Version 1)
Quarter: 2022Q1

REPORT INFORMATION
  Report Type: Spontaneous
  Country: US (occurrence: None)
  Receive Date: 20220118
  Receipt Date: 20220118
  Transmission Date: 20220423
  Serious: Yes (Other)
  Sender: FDA-Public Use
  Company Number: None

PATIENT
  Age: 71 Year
  Sex: Male

DRUGS (1)
  1. REPATHA [Suspect]
     Active Substance: EVOLOCUMAB
     Indication: Hyperlipidaemia
     Dosage: 140 MG Q 2 WEEKS SQ?
     Route: 058
     Dates: start: 20200215

REACTIONS (2)
  - Back pain [None]
  - Post procedural complication [None]

NARRATIVE: CASE EVENT DATE: 20200215
